FAERS Safety Report 25669698 (Version 1)
Quarter: 2025Q3

REPORT INFORMATION
  Report Type: Report from Study
  Country: EG (occurrence: EG)
  Receive Date: 20250812
  Receipt Date: 20250812
  Transmission Date: 20251020
  Serious: Yes (Hospitalization)
  Sender: ROCHE
  Company Number: EG-ROCHE-10000333829

PATIENT
  Age: 38 Year
  Sex: Female
  Weight: 85 kg

DRUGS (3)
  1. KADCYLA [Suspect]
     Active Substance: ADO-TRASTUZUMAB EMTANSINE
     Indication: Hepatic cancer
     Route: 042
     Dates: start: 20250301
  2. METRONIDAZOLE BENZOATE [Concomitant]
     Active Substance: METRONIDAZOLE BENZOATE
     Indication: Product used for unknown indication
     Route: 042
  3. CONTROLOC [Concomitant]
     Active Substance: PANTOPRAZOLE SODIUM
     Indication: Product used for unknown indication
     Route: 042

REACTIONS (10)
  - Hepatic enzyme increased [Recovered/Resolved]
  - Hepatic function abnormal [Not Recovered/Not Resolved]
  - Renal failure [Not Recovered/Not Resolved]
  - Mobility decreased [Recovering/Resolving]
  - Abdominal pain [Not Recovered/Not Resolved]
  - Balance disorder [Not Recovered/Not Resolved]
  - Weight increased [Not Recovered/Not Resolved]
  - Ascites [Not Recovered/Not Resolved]
  - Off label use [Unknown]
  - Amnesia [Unknown]

NARRATIVE: CASE EVENT DATE: 20250614
